FAERS Safety Report 5113249-X (Version None)
Quarter: 2006Q3

REPORT INFORMATION
  Report Type: 
  Country: None (occurrence: None)
  Receive Date: 20060920
  Receipt Date: 20060912
  Transmission Date: 20061208
  Serious: Yes (Hospitalization, Other)
  Sender: FDA-Public Use
  Company Number: 2006-02368

PATIENT
  Age: 79 Year
  Sex: Male

DRUGS (2)
  1. VELCADE [Suspect]
     Indication: DRUG USE FOR UNKNOWN INDICATION
     Dates: end: 20060818
  2. HALDOL [Concomitant]

REACTIONS (1)
  - PSYCHOTIC DISORDER [None]
